FAERS Safety Report 21710666 (Version 1)
Quarter: 2022Q4

REPORT INFORMATION
  Report Type: Spontaneous
  Country: US (occurrence: US)
  Receive Date: 20221212
  Receipt Date: 20221212
  Transmission Date: 20230112
  Serious: No
  Sender: FDA-Public Use
  Company Number: US-BRISTOL-MYERS SQUIBB COMPANY-2022-150963

PATIENT
  Age: 72 Year
  Sex: Male
  Weight: 76.66 kg

DRUGS (1)
  1. LENALIDOMIDE [Suspect]
     Active Substance: LENALIDOMIDE
     Indication: Monoclonal gammopathy
     Route: 048
     Dates: start: 20200302

REACTIONS (3)
  - Nasopharyngitis [Unknown]
  - Cough [Unknown]
  - Respiratory disorder [Unknown]
